FAERS Safety Report 8520833 (Version 4)
Quarter: 2014Q2

REPORT INFORMATION
  Report Type: Spontaneous
  Country: US (occurrence: US)
  Receive Date: 20120419
  Receipt Date: 20140422
  Transmission Date: 20141212
  Serious: Yes (Other)
  Sender: FDA-Public Use
  Company Number: US-ASTRAZENECA-2011SE41557

PATIENT
  Age: 461 Month
  Sex: Female
  Weight: 78 kg

DRUGS (37)
  1. NEXIUM [Suspect]
     Indication: GASTROOESOPHAGEAL REFLUX DISEASE
     Route: 048
     Dates: start: 1996
  2. NEXIUM [Suspect]
     Indication: ULCER
     Route: 048
     Dates: start: 1996
  3. NEXIUM [Suspect]
     Indication: GASTROOESOPHAGEAL REFLUX DISEASE
     Route: 048
     Dates: start: 2006, end: 2010
  4. NEXIUM [Suspect]
     Indication: ULCER
     Route: 048
     Dates: start: 2006, end: 2010
  5. NEXIUM [Suspect]
     Indication: GASTROOESOPHAGEAL REFLUX DISEASE
     Route: 048
     Dates: start: 20041229
  6. NEXIUM [Suspect]
     Indication: ULCER
     Route: 048
     Dates: start: 20041229
  7. OMEPRAZOLE OTC [Suspect]
     Indication: GASTROOESOPHAGEAL REFLUX DISEASE
     Route: 048
     Dates: start: 2010, end: 2011
  8. RANITIDINE [Concomitant]
     Indication: GASTROOESOPHAGEAL REFLUX DISEASE
     Dates: start: 2009
  9. NORCO [Concomitant]
     Indication: PAIN
  10. AVINZA [Concomitant]
     Indication: PAIN
  11. SEROQUEL [Concomitant]
     Indication: DEPRESSION
  12. SEROQUEL [Concomitant]
     Indication: DEPRESSION
     Dates: start: 20050424
  13. OXYCODONE [Concomitant]
     Indication: PAIN
  14. WELLBUTRIN [Concomitant]
     Indication: DEPRESSION
  15. WELLBUTRIN [Concomitant]
     Indication: DEPRESSION
     Dates: start: 20041115
  16. LAMICTAL [Concomitant]
     Indication: DEPRESSION
  17. LAMICTAL [Concomitant]
     Indication: DEPRESSION
     Dates: start: 20050511
  18. DEPO-PROVERA [Concomitant]
     Indication: CONTRACEPTION
  19. LYRICA [Concomitant]
     Indication: PAIN
  20. LYRICA [Concomitant]
     Indication: PAIN
     Dates: start: 20060718
  21. KLONIPIN [Concomitant]
     Indication: INSOMNIA
  22. KLONIPIN [Concomitant]
     Indication: DEPRESSION
  23. KLONIPIN [Concomitant]
     Indication: ANXIETY
  24. XANAX [Concomitant]
     Indication: INSOMNIA
  25. XANAX [Concomitant]
     Indication: ANXIETY
  26. ENALOPRIL [Concomitant]
  27. LEVOTHYROXINE [Concomitant]
  28. HYDROCHLOROTHIAZIDE [Concomitant]
  29. TUMS [Concomitant]
     Indication: GASTROOESOPHAGEAL REFLUX DISEASE
     Dosage: TAKE 2 OCCASIONALLY
  30. NEURONTIN [Concomitant]
     Indication: PAIN MANAGEMENT
  31. ANAPROX [Concomitant]
  32. FLEXERIL [Concomitant]
  33. MOTRIN [Concomitant]
     Dates: start: 20090828
  34. TIZANIDINE HCL [Concomitant]
     Dates: start: 20050520
  35. PREDNISONE [Concomitant]
     Dates: start: 20080205
  36. SULFAMETHOXAZOLE [Concomitant]
     Dates: start: 20081020
  37. TRAMADOL HCL [Concomitant]
     Dates: start: 20080424

REACTIONS (13)
  - Benign bone neoplasm [Unknown]
  - Osteoporosis [Unknown]
  - Bone density decreased [Unknown]
  - Bone disorder [Unknown]
  - Tibia fracture [Unknown]
  - Fibula fracture [Unknown]
  - Muscle spasms [Unknown]
  - Fall [Unknown]
  - Ankle fracture [Unknown]
  - Vitamin B12 deficiency [Unknown]
  - Pain in extremity [Unknown]
  - Hypoaesthesia [Unknown]
  - Paraesthesia [Unknown]
